FAERS Safety Report 25511531 (Version 1)
Quarter: 2025Q3

REPORT INFORMATION
  Report Type: Report from Study
  Country: CA (occurrence: CA)
  Receive Date: 20250703
  Receipt Date: 20250703
  Transmission Date: 20251021
  Serious: Yes (Hospitalization)
  Sender: ABBVIE
  Company Number: CA-ABBVIE-6352184

PATIENT
  Sex: Male

DRUGS (2)
  1. RINVOQ [Suspect]
     Active Substance: UPADACITINIB
     Indication: Crohn^s disease
     Dosage: DAILY FOR 12 WEEKS FORM STRENGTH 45 MG
     Route: 048
  2. UNSPECIFIED INGREDIENT [Concomitant]
     Active Substance: UNSPECIFIED INGREDIENT
     Indication: Product used for unknown indication

REACTIONS (6)
  - Peptic ulcer [Recovering/Resolving]
  - Abdominal pain upper [Recovering/Resolving]
  - Duodenal ulcer [Recovering/Resolving]
  - Helicobacter infection [Recovering/Resolving]
  - Crohn^s disease [Recovering/Resolving]
  - Peptic ulcer helicobacter [Recovering/Resolving]
